FAERS Safety Report 8431934-9 (Version None)
Quarter: 2012Q2

REPORT INFORMATION
  Report Type: 
  Country: None (occurrence: None)
  Receive Date: 20120613
  Receipt Date: 20110617
  Transmission Date: 20120825
  Serious: No
  Sender: FDA-Public Use
  Company Number: US-ASTRAZENECA-2011SE37006

PATIENT
  Age: 57 Year
  Sex: Female
  Weight: 65.8 kg

DRUGS (6)
  1. SINGULAIR [Concomitant]
  2. PRILOSEC [Concomitant]
  3. ZANTAC [Concomitant]
  4. ZYRTEC [Concomitant]
  5. RESTASIS [Concomitant]
  6. RHINOCORT [Suspect]
     Indication: HYPERSENSITIVITY
     Route: 045
     Dates: start: 20110101

REACTIONS (1)
  - GASTROOESOPHAGEAL REFLUX DISEASE [None]
